FAERS Safety Report 7687808-4 (Version None)
Quarter: 2011Q3

REPORT INFORMATION
  Report Type: 
  Country: None (occurrence: None)
  Receive Date: 20110817
  Receipt Date: 20110805
  Transmission Date: 20111222
  Serious: Yes (Hospitalization)
  Sender: FDA-Public Use
  Company Number: US-ELI_LILLY_AND_COMPANY-US201010000081

PATIENT
  Sex: Female

DRUGS (8)
  1. FORTEO [Suspect]
     Dosage: 20 UG, QD
  2. FORTEO [Suspect]
     Dosage: 20 UG, DAILY (1/D)
     Route: 065
  3. FORTEO [Suspect]
     Dosage: 20 UG, QD
     Route: 065
  4. ANTIBIOTICS [Concomitant]
  5. FORTEO [Suspect]
     Indication: OSTEOPOROSIS
     Dosage: 20 UG, DAILY (1/D)
     Dates: start: 20100913
  6. FORTEO [Suspect]
     Dosage: 20 UG, DAILY (1/D)
     Route: 065
  7. FORTEO [Suspect]
     Dosage: 20 UG, QD
  8. FORTEO [Suspect]
     Dosage: 20 UG, DAILY (1/D)

REACTIONS (16)
  - JOINT SWELLING [None]
  - OEDEMA PERIPHERAL [None]
  - INJECTION SITE HAEMORRHAGE [None]
  - ARTHROPATHY [None]
  - HYPERSENSITIVITY [None]
  - MUSCLE SPASMS [None]
  - MALAISE [None]
  - HEADACHE [None]
  - EYE DISORDER [None]
  - ARTHRITIS [None]
  - ARTHRALGIA [None]
  - HEAD INJURY [None]
  - NAUSEA [None]
  - CONTUSION [None]
  - FATIGUE [None]
  - JOINT INJURY [None]
